FAERS Safety Report 7338936-4 (Version None)
Quarter: 2011Q1

REPORT INFORMATION
  Report Type: 
  Country: None (occurrence: None)
  Receive Date: 20110308
  Receipt Date: 20110302
  Transmission Date: 20110831
  Serious: Yes (Other)
  Sender: FDA-Public Use
  Company Number: US-PFIZER INC-2011046946

PATIENT
  Sex: Male
  Weight: 65.76 kg

DRUGS (3)
  1. ROBITUSSIN [Suspect]
     Indication: LOWER RESPIRATORY TRACT INFECTION
     Dosage: UNK
     Route: 048
     Dates: start: 20110225
  2. CODEINE [Suspect]
  3. AZITHROMYCIN [Suspect]
     Indication: LOWER RESPIRATORY TRACT INFECTION
     Dosage: 250 MG, UNK
     Dates: start: 20110225

REACTIONS (1)
  - CHROMATURIA [None]
